FAERS Safety Report 4698498-7 (Version None)
Quarter: 2005Q2

REPORT INFORMATION
  Report Type: 
  Country: None (occurrence: None)
  Receive Date: 20050621
  Receipt Date: 20050608
  Transmission Date: 20051028
  Serious: Yes (Death, Hospitalization)
  Sender: FDA-Public Use
  Company Number: FR_050606595

PATIENT
  Age: 70 Year
  Sex: Female
  Weight: 56 kg

DRUGS (3)
  1. GEMZAR [Suspect]
     Indication: LUNG ADENOCARCINOMA METASTATIC
     Dosage: 865 MG/M2/2 OTHER
     Route: 050
     Dates: start: 20050506
  2. CISPLATIN [Concomitant]
  3. MORPHINE SULFATE [Concomitant]

REACTIONS (5)
  - CONDITION AGGRAVATED [None]
  - DERMATITIS ALLERGIC [None]
  - PNEUMONIA [None]
  - RENAL FAILURE [None]
  - TACHYCARDIA [None]
